FAERS Safety Report 7739834-4 (Version None)
Quarter: 2011Q3

REPORT INFORMATION
  Report Type: 
  Country: None (occurrence: None)
  Receive Date: 20110909
  Receipt Date: 20110830
  Transmission Date: 20111222
  Serious: Yes (Other)
  Sender: FDA-Public Use
  Company Number: US-JNJFOC-20110901681

PATIENT
  Age: 65 Year
  Sex: Female
  Weight: 72.58 kg

DRUGS (3)
  1. MONISTAT 3 [Suspect]
     Indication: FUNGAL INFECTION
     Dosage: 1 APPLICATOR, ONCE
     Route: 067
     Dates: start: 20110731, end: 20110731
  2. MONISTAT 3 [Suspect]
     Route: 067
  3. BENICAR [Concomitant]
     Indication: BLOOD PRESSURE
     Dosage: FOR YEARS
     Route: 065

REACTIONS (1)
  - VAGINAL HAEMORRHAGE [None]
